FAERS Safety Report 18487863 (Version 1)
Quarter: 2020Q4

REPORT INFORMATION
  Report Type: Spontaneous
  Country: US (occurrence: US)
  Receive Date: 20201110
  Receipt Date: 20201110
  Transmission Date: 20210114
  Serious: Yes (Death, Hospitalization, Other)
  Sender: FDA-Public Use
  Company Number: US-GILEAD-2020-0503515

PATIENT
  Age: 66 Year
  Sex: Female

DRUGS (7)
  1. YESCARTA [Suspect]
     Active Substance: AXICABTAGENE CILOLEUCEL
     Indication: DIFFUSE LARGE B-CELL LYMPHOMA REFRACTORY
     Dosage: THERAPY COMPLETED
     Route: 065
  2. CYCLOPHOSPHAMIDE. [Concomitant]
     Active Substance: CYCLOPHOSPHAMIDE
     Indication: BONE MARROW CONDITIONING REGIMEN
  3. LISINOPRIL. [Concomitant]
     Active Substance: LISINOPRIL
     Dosage: 2.5 MG, QD
  4. FLUDARABINE [Concomitant]
     Active Substance: FLUDARABINE PHOSPHATE
     Indication: BONE MARROW CONDITIONING REGIMEN
  5. METOPROLOL SUCCINATE. [Concomitant]
     Active Substance: METOPROLOL SUCCINATE
     Dosage: 12.5 MG, QD
  6. FUROSEMIDE. [Concomitant]
     Active Substance: FUROSEMIDE
     Dosage: INTERMITTENT DOSING 20 MG TO 40 MG
  7. FUROSEMIDE. [Concomitant]
     Active Substance: FUROSEMIDE
     Dosage: 20 MG QD WHEN PAD WAS 18 MM HG

REACTIONS (11)
  - Cardiogenic shock [Unknown]
  - Respiratory failure [Unknown]
  - Sinus tachycardia [Unknown]
  - Pulmonary oedema [Unknown]
  - Atrial flutter [Recovered/Resolved]
  - Hypotension [Unknown]
  - Pyrexia [Unknown]
  - Septic shock [Unknown]
  - Pulmonary arterial pressure increased [Unknown]
  - Cytokine release syndrome [Unknown]
  - Ventricular tachycardia [Fatal]
